FAERS Safety Report 7022592-9 (Version None)
Quarter: 2010Q3

REPORT INFORMATION
  Report Type: 
  Country: None (occurrence: None)
  Receive Date: 20100930
  Receipt Date: 20100923
  Transmission Date: 20110219
  Serious: Yes (Disabling, Other)
  Sender: FDA-Public Use
  Company Number: AU-PFIZER INC-2010101686

PATIENT
  Age: 35 Year
  Sex: Female
  Weight: 40 kg

DRUGS (1)
  1. CHAMPIX [Suspect]
     Dosage: UNK
     Dates: start: 20100501, end: 20100807

REACTIONS (2)
  - DEPRESSED MOOD [None]
  - EMOTIONAL DISORDER [None]
